FAERS Safety Report 4293729-X (Version None)
Quarter: 2004Q1

REPORT INFORMATION
  Report Type: 
  Country: None (occurrence: None)
  Receive Date: 20040126
  Receipt Date: 20031110
  Transmission Date: 20041129
  Serious: No
  Sender: FDA-Public Use
  Company Number: USA031050223

PATIENT
  Age: 69 Year
  Sex: Female
  Weight: 54 kg

DRUGS (2)
  1. FORTEO [Suspect]
     Indication: OSTEOPOROSIS
     Dosage: 20 UG/DAY
     Dates: start: 20030812
  2. UNSPECIFIED BLOOD PRESSURE PILL [Concomitant]

REACTIONS (8)
  - ARTHRALGIA [None]
  - BACK INJURY [None]
  - BACK PAIN [None]
  - HYPERTENSION [None]
  - PAIN IN EXTREMITY [None]
  - PARAESTHESIA [None]
  - PHARYNGOLARYNGEAL PAIN [None]
  - STRESS SYMPTOMS [None]
